FAERS Safety Report 5006883-9 (Version None)
Quarter: 2006Q2

REPORT INFORMATION
  Report Type: 
  Country: None (occurrence: None)
  Receive Date: 20060516
  Receipt Date: 20060501
  Transmission Date: 20061013
  Serious: Yes (Other)
  Sender: FDA-Public Use
  Company Number: FACT0600236

PATIENT
  Age: 36 Year
  Sex: Male
  Weight: 67.1 kg

DRUGS (4)
  1. FACTIVE [Suspect]
     Indication: RESPIRATORY TRACT INFECTION BACTERIAL
     Dosage: 320 MG, QD, ORAL
     Route: 048
     Dates: start: 20060420, end: 20060421
  2. ENTEX PSE              (GUAIFENESIN, PSEUDOEPHEDRINE HYDROCHLORIDE) [Suspect]
     Dosage: Q12HR, ORAL
     Route: 048
     Dates: start: 20060420, end: 20060421
  3. ZESTRIL [Concomitant]
  4. PAXIL [Concomitant]

REACTIONS (1)
  - CONVULSION [None]
